FAERS Safety Report 9938100 (Version 1)
Quarter: 2014Q1

REPORT INFORMATION
  Report Type: Report from Study
  Country: US (occurrence: US)
  Receive Date: 20140303
  Receipt Date: 20140303
  Transmission Date: 20141002
  Serious: Yes (Other)
  Sender: FDA-Public Use
  Company Number: US-ROCHE-1348135

PATIENT
  Sex: Female

DRUGS (14)
  1. LUCENTIS [Suspect]
     Indication: DIABETIC RETINOPATHY
     Route: 050
  2. LUCENTIS [Suspect]
     Indication: DIABETIC RETINAL OEDEMA
  3. AVASTIN [Suspect]
     Indication: DIABETIC RETINAL OEDEMA
     Route: 065
  4. AVASTIN [Suspect]
     Indication: DIABETIC RETINOPATHY
  5. AMITRIPTYLINE [Concomitant]
  6. ACETYLSALICYLIC ACID [Concomitant]
     Dosage: 81
     Route: 065
  7. CELEXA (UNITED STATES) [Concomitant]
  8. ENALAPRIL MALEATE [Concomitant]
     Route: 065
  9. FOSRENOL [Concomitant]
  10. INSULIN 70/30 [Concomitant]
  11. NORVASC [Concomitant]
  12. SENSIPAR [Concomitant]
  13. SIMVASTATIN [Concomitant]
  14. TRIAMCINOLONE [Concomitant]
     Dosage: 40 MG/CC
     Route: 050

REACTIONS (6)
  - Macular oedema [Unknown]
  - Intraocular lens implant [Unknown]
  - Macular fibrosis [Unknown]
  - Posterior capsule opacification [Unknown]
  - Off label use [Unknown]
  - Macular fibrosis [Unknown]
